FAERS Safety Report 13268301 (Version 4)
Quarter: 2017Q2

REPORT INFORMATION
  Report Type: Spontaneous
  Country: PR (occurrence: PR)
  Receive Date: 20170224
  Receipt Date: 20170509
  Transmission Date: 20170830
  Serious: Yes (Other)
  Sender: FDA-Public Use
  Company Number: PR-PFIZER INC-2016565706

PATIENT
  Age: 79 Year
  Sex: Male
  Weight: 79.37 kg

DRUGS (6)
  1. SUTENT [Suspect]
     Active Substance: SUNITINIB MALATE
     Dosage: 37.5 MG, CYCLIC (2 WEEKS ON/1 WEEK OFF)
  2. GABAPENTIN. [Concomitant]
     Active Substance: GABAPENTIN
     Dosage: UNK
  3. SUTENT [Suspect]
     Active Substance: SUNITINIB MALATE
     Indication: RENAL CANCER METASTATIC
     Dosage: 12.5 MG, CYCLIC (DAILY FOR 2WEEKS ON / 1 WEEK OFF)
     Dates: start: 20161017
  4. SUTENT [Suspect]
     Active Substance: SUNITINIB MALATE
     Dosage: 25 MG, CYCLIC (2 WEEKS ON/1 WEEK OFF)
     Dates: start: 201612
  5. SUTENT [Suspect]
     Active Substance: SUNITINIB MALATE
     Dosage: UNK
     Dates: start: 20170130
  6. SUTENT [Suspect]
     Active Substance: SUNITINIB MALATE
     Dosage: 25 MG, CYCLIC, (2 WEEKS ON/1 WEEK OFF)

REACTIONS (11)
  - Fatigue [Unknown]
  - Chest pain [Recovering/Resolving]
  - Viral upper respiratory tract infection [Unknown]
  - Carotid artery occlusion [Unknown]
  - Neoplasm progression [Unknown]
  - Skin discolouration [Unknown]
  - Weight decreased [Unknown]
  - Skin induration [Unknown]
  - Skin disorder [Unknown]
  - Lung disorder [Unknown]
  - Cough [Unknown]
